FAERS Safety Report 7219214-0 (Version None)
Quarter: 2011Q1

REPORT INFORMATION
  Report Type: 
  Country: None (occurrence: None)
  Receive Date: 20110111
  Receipt Date: 20110104
  Transmission Date: 20110831
  Serious: Yes (Hospitalization, Other)
  Sender: FDA-Public Use
  Company Number: US-PFIZER INC-2010172788

PATIENT
  Sex: Male
  Weight: 27.8 kg

DRUGS (2)
  1. ALBUTEROL [Concomitant]
     Indication: ASTHMA
     Dosage: 2 PUFFS AS NEEDED FOR ASTHMA
     Dates: start: 20090616
  2. XYNTHA [Suspect]
     Indication: FACTOR VIII DEFICIENCY
     Dosage: 1219 IU, 2X/WEEK
     Route: 042
     Dates: start: 20090518

REACTIONS (2)
  - FACTOR VIII DEFICIENCY [None]
  - HAEMARTHROSIS [None]
